FAERS Safety Report 6882993-6 (Version None)
Quarter: 2010Q3

REPORT INFORMATION
  Report Type: 
  Country: None (occurrence: None)
  Receive Date: 20100727
  Receipt Date: 20100720
  Transmission Date: 20110219
  Serious: Yes (Other)
  Sender: FDA-Public Use
  Company Number: TR-AMGEN-KDL425822

PATIENT
  Age: 40 Year
  Sex: Male

DRUGS (3)
  1. NEUPOGEN [Suspect]
     Indication: PERIPHERAL BLOOD STEM CELL APHERESIS
  2. ESCITALOPRAM [Concomitant]
  3. UNSPECIFIED ANTIANXIETY AGENT [Concomitant]

REACTIONS (1)
  - HYPERTRIGLYCERIDAEMIA [None]
